FAERS Safety Report 7223747-0 (Version None)
Quarter: 2011Q1

REPORT INFORMATION
  Report Type: 
  Country: None (occurrence: None)
  Receive Date: 20110112
  Receipt Date: 20101105
  Transmission Date: 20110831
  Serious: No
  Sender: FDA-Public Use
  Company Number: US-ALLERGAN-1014345US

PATIENT
  Age: 86 Year
  Sex: Female

DRUGS (2)
  1. RESTASIS [Suspect]
     Indication: FOREIGN BODY SENSATION IN EYES
     Dosage: 1 GTT, BID
     Route: 047
     Dates: start: 20101030
  2. LUMIGAN [Concomitant]
     Indication: GLAUCOMA
     Dosage: 1 GTT, QD
     Route: 047

REACTIONS (1)
  - SKIN DISCOLOURATION [None]
